FAERS Safety Report 5482928-7 (Version None)
Quarter: 2007Q4

REPORT INFORMATION
  Report Type: 
  Country: None (occurrence: None)
  Receive Date: 20071011
  Receipt Date: 20071005
  Transmission Date: 20080405
  Serious: Yes (Other)
  Sender: FDA-Public Use
  Company Number: AU-SANOFI-SYNTHELABO-A01200705467

PATIENT
  Sex: Male

DRUGS (4)
  1. PLAVIX [Suspect]
     Indication: MYOCARDIAL ISCHAEMIA
     Route: 048
     Dates: start: 20010101, end: 20010101
  2. PLAVIX [Suspect]
     Indication: CORONARY ARTERIAL STENT INSERTION
     Route: 048
     Dates: start: 20010101, end: 20010101
  3. PLAVIX [Suspect]
     Route: 048
     Dates: start: 20030601
  4. PLAVIX [Suspect]
     Route: 048
     Dates: start: 20030601

REACTIONS (1)
  - PLEURAL MESOTHELIOMA MALIGNANT RECURRENT [None]
